FAERS Safety Report 6976888-7 (Version None)
Quarter: 2010Q3

REPORT INFORMATION
  Report Type: 
  Country: None (occurrence: None)
  Receive Date: 20100910
  Receipt Date: 20100901
  Transmission Date: 20110219
  Serious: Yes (Other)
  Sender: FDA-Public Use
  Company Number: B0673862A

PATIENT
  Age: 26 Year
  Sex: Female

DRUGS (7)
  1. LAMIVUDINE-HIV [Suspect]
     Indication: HIV INFECTION
     Route: 065
  2. TENOFOVIR [Suspect]
     Indication: HIV INFECTION
     Route: 065
  3. LOPINAVIR [Suspect]
     Indication: HIV INFECTION
     Route: 065
  4. RITONAVIR [Suspect]
     Indication: HIV INFECTION
     Route: 065
  5. SULPHADIAZINE [Concomitant]
  6. PYRIMETHAMINE [Concomitant]
  7. FOLINIC ACID [Concomitant]

REACTIONS (6)
  - CENTRAL NERVOUS SYSTEM LESION [None]
  - CEREBRAL TOXOPLASMOSIS [None]
  - GLIOSIS [None]
  - ILL-DEFINED DISORDER [None]
  - IMMUNE RECONSTITUTION SYNDROME [None]
  - LYMPHOCYTIC INFILTRATION [None]
